FAERS Safety Report 12389314 (Version 2)
Quarter: 2017Q1

REPORT INFORMATION
  Report Type: Spontaneous
  Country: US (occurrence: US)
  Receive Date: 20160520
  Receipt Date: 20170203
  Transmission Date: 20170428
  Serious: Yes (Other)
  Sender: FDA-Public Use
  Company Number: PHHY2016US067821

PATIENT
  Age: 57 Year
  Sex: Female

DRUGS (2)
  1. ZOLEDRONATE [Suspect]
     Active Substance: ZOLEDRONIC ACID
     Indication: FIBROUS DYSPLASIA OF BONE
     Dosage: 4 MG, EVERY 6 MONTHS FROM 39 TO 49 YEARS OF AGE
     Route: 065
  2. PAMIDRONATE [Suspect]
     Active Substance: PAMIDRONATE DISODIUM
     Indication: FIBROUS DYSPLASIA OF BONE
     Dosage: 60 MG, EVERY 3 MONTHS FROM 36 TO 39 YEARS OF AGE
     Route: 042

REACTIONS (4)
  - Osteonecrosis of jaw [Recovered/Resolved]
  - Exposed bone in jaw [Unknown]
  - Bone fistula [Recovered/Resolved]
  - Product use issue [Unknown]
